FAERS Safety Report 18770848 (Version 1)
Quarter: 2021Q1

REPORT INFORMATION
  Report Type: Report from Study
  Country: US (occurrence: US)
  Receive Date: 20210121
  Receipt Date: 20210121
  Transmission Date: 20210419
  Serious: No
  Sender: FDA-Public Use
  Company Number: NVSC2021US009836

PATIENT
  Sex: Female

DRUGS (1)
  1. PIQRAY [Suspect]
     Active Substance: ALPELISIB
     Indication: PRODUCT USED FOR UNKNOWN INDICATION
     Dosage: UNK
     Route: 048

REACTIONS (6)
  - Feeding disorder [Unknown]
  - Diarrhoea [Unknown]
  - Hypoaesthesia [Unknown]
  - Pruritus [Recovering/Resolving]
  - Nausea [Unknown]
  - Rash pruritic [Recovering/Resolving]
